FAERS Safety Report 9030435 (Version 1)
Quarter: 2013Q1

REPORT INFORMATION
  Report Type: Spontaneous
  Country: TR (occurrence: TR)
  Receive Date: 20130122
  Receipt Date: 20130122
  Transmission Date: 20140127
  Serious: Yes (Other)
  Sender: FDA-Public Use
  Company Number: TR-JNJFOC-20130107905

PATIENT
  Sex: Male

DRUGS (1)
  1. NICORETTE 2 MG GUM [Suspect]
     Indication: SMOKING CESSATION THERAPY
     Route: 002
     Dates: start: 200403

REACTIONS (2)
  - Nicotine dependence [Unknown]
  - Intentional drug misuse [Unknown]
